FAERS Safety Report 15611604 (Version 1)
Quarter: 2018Q4

REPORT INFORMATION
  Report Type: Spontaneous
  Country: GB (occurrence: GB)
  Receive Date: 20181113
  Receipt Date: 20181113
  Transmission Date: 20190205
  Serious: Yes (Hospitalization, Other)
  Sender: FDA-Public Use
  Company Number: GB-TORRENT-00019439

PATIENT
  Age: 15 Year
  Sex: Female

DRUGS (8)
  1. PERAMPANEL [Suspect]
     Active Substance: PERAMPANEL
     Indication: GENERALISED TONIC-CLONIC SEIZURE
     Dosage: UNKNOWN
  2. PHENYTOIN. [Suspect]
     Active Substance: PHENYTOIN
     Indication: GENERALISED TONIC-CLONIC SEIZURE
     Dosage: UNKNOWN
     Route: 048
  3. LEVETIRACETAM. [Suspect]
     Active Substance: LEVETIRACETAM
     Indication: GENERALISED TONIC-CLONIC SEIZURE
     Dosage: UNKNOWN
     Route: 048
  4. PHENOBARBITONE [Suspect]
     Active Substance: PHENOBARBITAL
     Indication: GENERALISED TONIC-CLONIC SEIZURE
     Dosage: UNKNOWN
  5. METHYLPREDNISOLONE. [Suspect]
     Active Substance: METHYLPREDNISOLONE
     Indication: GENERALISED TONIC-CLONIC SEIZURE
     Dosage: UNKNOWN
  6. LACOSAMIDE. [Suspect]
     Active Substance: LACOSAMIDE
     Indication: GENERALISED TONIC-CLONIC SEIZURE
     Dosage: UNKNOWN
  7. DIAZEPAM. [Suspect]
     Active Substance: DIAZEPAM
     Indication: GENERALISED TONIC-CLONIC SEIZURE
     Dosage: UNKNOWN
  8. SODIUM VALPROATE [Suspect]
     Active Substance: VALPROATE SODIUM
     Indication: GENERALISED TONIC-CLONIC SEIZURE
     Dosage: UNKNOWN

REACTIONS (16)
  - Encephalopathy [Unknown]
  - Hypersomnia [Unknown]
  - Central nervous system lesion [Unknown]
  - Myoclonus [Unknown]
  - Visual acuity reduced [Unknown]
  - Headache [Unknown]
  - Gaze palsy [Unknown]
  - Agnosia [Unknown]
  - Visual impairment [Unknown]
  - Areflexia [Unknown]
  - Epilepsy [Recovering/Resolving]
  - Balance disorder [Unknown]
  - Ataxia [Unknown]
  - Drug ineffective [Unknown]
  - Status epilepticus [Recovered/Resolved]
  - Gait disturbance [Unknown]
